FAERS Safety Report 15359116 (Version 1)
Quarter: 2018Q3

REPORT INFORMATION
  Report Type: Spontaneous
  Country: SE (occurrence: SE)
  Receive Date: 20180906
  Receipt Date: 20180906
  Transmission Date: 20181010
  Serious: Yes (Other)
  Sender: FDA-Public Use
  Company Number: SE-ROCHE-2181473

PATIENT
  Age: 73 Year
  Sex: Female

DRUGS (2)
  1. HERCEPTIN [Suspect]
     Active Substance: TRASTUZUMAB
     Indication: BREAST CANCER
     Route: 058
     Dates: start: 20171011, end: 201804
  2. PACLITAXEL. [Concomitant]
     Active Substance: PACLITAXEL
     Route: 065

REACTIONS (1)
  - Echocardiogram abnormal [Recovered/Resolved]

NARRATIVE: CASE EVENT DATE: 20171215
